FAERS Safety Report 24445900 (Version 1)
Quarter: 2024Q4

REPORT INFORMATION
  Report Type: Spontaneous
  Country: US (occurrence: None)
  Receive Date: 20241016
  Receipt Date: 20241016
  Transmission Date: 20250114
  Serious: Yes (unspecified)
  Sender: Public
  Company Number: None

PATIENT
  Age: 68 Year
  Sex: Male
  Weight: 81.9 kg

DRUGS (9)
  1. NYSTATIN [Suspect]
     Active Substance: NYSTATIN
     Indication: Oral candidiasis
     Dosage: OTHER QUANTITY : 1 TABLESPOON(S);?FREQUENCY : 3 TIMES A DAY;?
     Dates: start: 20240528, end: 20240610
  2. METFORMIN [Concomitant]
  3. LISINOPRIL [Concomitant]
  4. AMLODIPINE [Concomitant]
  5. ALLOPURINOL [Concomitant]
  6. Rousovastatin [Concomitant]
  7. Timilol [Concomitant]
  8. VITAMIN D2 [Concomitant]
     Active Substance: ERGOCALCIFEROL
  9. VITAMIN B12 [Concomitant]
     Active Substance: CYANOCOBALAMIN

REACTIONS (7)
  - Blood glucose increased [None]
  - Glycosylated haemoglobin increased [None]
  - Hyperkalaemia [None]
  - Renal impairment [None]
  - Fatigue [None]
  - Blood urea increased [None]
  - Product formulation issue [None]

NARRATIVE: CASE EVENT DATE: 20240528
